FAERS Safety Report 8827443 (Version 1)
Quarter: 2012Q4

REPORT INFORMATION
  Report Type: 
  Country: US (occurrence: US)
  Receive Date: 20121008
  Receipt Date: 20121008
  Transmission Date: 20130627
  Serious: Yes (Hospitalization, Other)
  Sender: FDA-Public Use
  Company Number: US-JNJFOC-20120803001

PATIENT
  Age: 28 Year
  Sex: Male

DRUGS (3)
  1. REMICADE [Suspect]
     Indication: COLITIS ULCERATIVE
     Route: 042
     Dates: start: 20120126, end: 20120209
  2. REMICADE [Suspect]
     Indication: CROHN^S DISEASE
     Route: 042
     Dates: start: 20120126, end: 20120209
  3. LIALDA [Suspect]
     Indication: COLITIS ULCERATIVE
     Route: 048
     Dates: start: 201201

REACTIONS (4)
  - Pericarditis [Recovered/Resolved]
  - Lung infiltration [Recovered/Resolved]
  - Organising pneumonia [Recovered/Resolved]
  - Colitis ulcerative [Unknown]
